FAERS Safety Report 20339447 (Version 1)
Quarter: 2022Q1

REPORT INFORMATION
  Report Type: Spontaneous
  Country: NL (occurrence: NL)
  Receive Date: 20220117
  Receipt Date: 20220117
  Transmission Date: 20220423
  Serious: Yes (Other)
  Sender: FDA-Public Use
  Company Number: NL-CELLTRION INC.-2022NL000302

PATIENT

DRUGS (10)
  1. TRASTUZUMAB [Suspect]
     Active Substance: TRASTUZUMAB
     Indication: HER2 positive salivary gland cancer
     Dosage: EITHER INTRAVENOUSLY (I.V., STARTING DOSE 8 MG/KG, WITH SUBSEQUENT DOSAGES OF 6 MG/KG) OR SUBCUTANEO
  2. DOCETAXEL [Suspect]
     Active Substance: DOCETAXEL
     Indication: HER2 positive salivary gland cancer
     Dosage: 75 MG/M2 (6 DOSAGES) EVERY 3 WEEKS
  3. DOCETAXEL [Suspect]
     Active Substance: DOCETAXEL
     Dosage: 75 MG/M2 (6 DOSAGES) EVERY 3 WEEKS
  4. DOCETAXEL [Suspect]
     Active Substance: DOCETAXEL
     Dosage: 75 MG/M2 (6 DOSAGES) EVERY 3 WEEKS
  5. DOCETAXEL [Suspect]
     Active Substance: DOCETAXEL
     Dosage: 75 MG/M2 (6 DOSAGES) EVERY 3 WEEKS
  6. DOCETAXEL [Suspect]
     Active Substance: DOCETAXEL
     Dosage: 75 MG/M2 (6 DOSAGES) EVERY 3 WEEKS
  7. DOCETAXEL [Suspect]
     Active Substance: DOCETAXEL
     Dosage: 75 MG/M2 (6 DOSAGES) EVERY 3 WEEKS
  8. PERTUZUMAB [Suspect]
     Active Substance: PERTUZUMAB
     Indication: HER2 positive salivary gland cancer
     Dosage: 840 MG (STARTING DOSE) ADMINSTERED EVERY 3 WEEKS SUBSEQUENTLY
     Route: 042
  9. PERTUZUMAB [Suspect]
     Active Substance: PERTUZUMAB
     Dosage: 420 MG (SUBSEQUENT DOSAGES) ADMINISTERED EVERY 3 WEEKS
     Route: 042
  10. ADO-TRASTUZUMAB EMTANSINE [Suspect]
     Active Substance: ADO-TRASTUZUMAB EMTANSINE
     Indication: HER2 positive salivary gland cancer
     Dosage: 3.6 MG/KG EVERY 3 WEEKS
     Route: 042

REACTIONS (4)
  - HER2 positive salivary gland cancer [Unknown]
  - Disease progression [Unknown]
  - Therapy partial responder [Unknown]
  - Off label use [Unknown]
